FAERS Safety Report 11572168 (Version 4)
Quarter: 2016Q3

REPORT INFORMATION
  Report Type: Report from Study
  Country: AR (occurrence: AR)
  Receive Date: 20150929
  Receipt Date: 20160720
  Transmission Date: 20161109
  Serious: Yes (Hospitalization)
  Sender: FDA-Public Use
  Company Number: AR-ABBVIE-15P-007-1470522-00

PATIENT
  Age: 55 Year
  Sex: Female

DRUGS (1)
  1. ZEMPLAR [Suspect]
     Active Substance: PARICALCITOL
     Indication: HYPERPARATHYROIDISM SECONDARY
     Route: 042
     Dates: start: 20150401

REACTIONS (5)
  - Osteonecrosis [Recovering/Resolving]
  - Arthralgia [Unknown]
  - Blood phosphorus increased [Recovering/Resolving]
  - Bone pain [Unknown]
  - Blood parathyroid hormone increased [Recovering/Resolving]

NARRATIVE: CASE EVENT DATE: 201506
